APPROVED DRUG PRODUCT: CLOFIBRATE
Active Ingredient: CLOFIBRATE
Strength: 500MG
Dosage Form/Route: CAPSULE;ORAL
Application: A072600 | Product #001
Applicant: TEVA PHARMACEUTICALS USA INC
Approved: Jul 25, 1991 | RLD: No | RS: No | Type: DISCN